FAERS Safety Report 19452763 (Version 1)
Quarter: 2021Q2

REPORT INFORMATION
  Report Type: Spontaneous
  Country: VN (occurrence: VN)
  Receive Date: 20210623
  Receipt Date: 20210623
  Transmission Date: 20210717
  Serious: Yes (Hospitalization)
  Sender: FDA-Public Use
  Company Number: VN-BAYER-2021-162323

PATIENT
  Sex: Female
  Weight: 56 kg

DRUGS (1)
  1. ULTRAVIST [Suspect]
     Active Substance: IOPROMIDE
     Indication: ANGIOCARDIOGRAM
     Dosage: 70 ML, ONCE
     Route: 042
     Dates: start: 20210415, end: 20210415

REACTIONS (6)
  - Flushing [Recovered/Resolved]
  - Headache [Recovered/Resolved]
  - Discomfort [Recovered/Resolved]
  - Dyspnoea [Recovered/Resolved]
  - Hypotension [Recovered/Resolved]
  - Urticaria [Recovered/Resolved]

NARRATIVE: CASE EVENT DATE: 20210415
